FAERS Safety Report 15297265 (Version 2)
Quarter: 2024Q1

REPORT INFORMATION
  Report Type: Spontaneous
  Country: PT (occurrence: PT)
  Receive Date: 20180820
  Receipt Date: 20240321
  Transmission Date: 20240410
  Serious: Yes (Hospitalization)
  Sender: FDA-Public Use
  Company Number: PT-WARNER CHILCOTT-2015-001619

PATIENT
  Age: 23 Year
  Sex: Male

DRUGS (2)
  1. MESALAMINE [Suspect]
     Active Substance: MESALAMINE
     Indication: Colitis ulcerative
     Dosage: DOSE DESC: UNKNOWN, FORM: UNKNOWN
     Route: 065
     Dates: start: 2009
  2. URSODIOL [Concomitant]
     Active Substance: URSODIOL
     Indication: Cholangitis sclerosing
     Dosage: DOSE DESC: UNK, UNKNOWN
     Route: 065

REACTIONS (5)
  - Eosinophilic colitis [Recovering/Resolving]
  - Frequent bowel movements [Recovering/Resolving]
  - Eosinophilia [Recovered/Resolved]
  - Diarrhoea [Recovering/Resolving]
  - Drug hypersensitivity [Recovering/Resolving]

NARRATIVE: CASE EVENT DATE: 20140101
